FAERS Safety Report 5268695-0 (Version None)
Quarter: 2007Q1

REPORT INFORMATION
  Report Type: 
  Country: None (occurrence: None)
  Receive Date: 20070319
  Receipt Date: 20070308
  Transmission Date: 20070707
  Serious: Yes (Hospitalization)
  Sender: FDA-Public Use
  Company Number: BE-ELI_LILLY_AND_COMPANY-BE200702004587

PATIENT
  Age: 61 Year
  Sex: Female
  Weight: 48.4 kg

DRUGS (12)
  1. TERIPARATIDE [Suspect]
     Indication: OSTEOPOROSIS
     Dosage: 20 UG,
     Dates: start: 20061020
  2. PROGRAF [Concomitant]
     Dosage: 2 MG, 3/D
     Route: 048
  3. PROGRAF [Concomitant]
     Dosage: 0.5 UNK, 3/D
     Route: 048
  4. IMURAN [Concomitant]
     Dosage: 50 MG, DAILY (1/D)
     Route: 048
  5. MEDROL [Concomitant]
     Dosage: 32 MG, DAILY (1/D)
  6. MEDROL [Concomitant]
     Dosage: 18 MG, DAILY (1/D)
     Dates: start: 20061208
  7. LYSOMUCIL [Concomitant]
     Dosage: 600 MG, UNK
  8. THEOLAIR [Concomitant]
     Route: 048
  9. THEOLAIR [Concomitant]
     Dosage: 250 MG, 2/D
     Route: 048
     Dates: start: 20061218
  10. SERETIDE [Concomitant]
     Route: 055
  11. ASAFLOW [Concomitant]
     Dosage: 160 MG, DAILY (1/D)
     Route: 048
  12. ZANTAC [Concomitant]
     Dosage: 300 MG, DAILY (1/D)
     Route: 048

REACTIONS (3)
  - PNEUMONIA VIRAL [None]
  - RESPIRATORY DISTRESS [None]
  - URINARY TRACT INFECTION [None]
